FAERS Safety Report 4662260-1 (Version None)
Quarter: 2005Q2

REPORT INFORMATION
  Report Type: 
  Country: None (occurrence: None)
  Receive Date: 20050516
  Receipt Date: 20050503
  Transmission Date: 20051028
  Serious: Yes (Hospitalization, Other)
  Sender: FDA-Public Use
  Company Number: FR-JNJFOC-20050501195

PATIENT
  Weight: 59 kg

DRUGS (2)
  1. INFLIXIMAB [Suspect]
     Route: 042
  2. INFLIXIMAB [Suspect]
     Indication: RHEUMATOID ARTHRITIS
     Route: 042

REACTIONS (2)
  - ASPERGILLOMA [None]
  - RETINAL VEIN THROMBOSIS [None]
